FAERS Safety Report 6882539-2 (Version None)
Quarter: 2010Q3

REPORT INFORMATION
  Report Type: 
  Country: None (occurrence: None)
  Receive Date: 20100702
  Receipt Date: 20100304
  Transmission Date: 20110219
  Serious: Yes (Hospitalization, Other)
  Sender: FDA-Public Use
  Company Number: 226587USA

PATIENT
  Sex: Female

DRUGS (1)
  1. TRI LO SPRINTEC [Suspect]
     Dosage: ORAL
     Route: 048
     Dates: start: 20091201

REACTIONS (1)
  - DEEP VEIN THROMBOSIS [None]
